FAERS Safety Report 8920956 (Version 3)
Quarter: 2013Q1

REPORT INFORMATION
  Report Type: Spontaneous
  Country: US (occurrence: US)
  Receive Date: 20121122
  Receipt Date: 20130307
  Transmission Date: 20140127
  Serious: No
  Sender: FDA-Public Use
  Company Number: US-PFIZER INC-2012289677

PATIENT
  Age: 67 Year
  Sex: Male
  Weight: 72.56 kg

DRUGS (11)
  1. SUTENT [Suspect]
     Indication: GASTROINTESTINAL STROMAL TUMOUR
     Dosage: 50 MG, 1X/DAY, DAILY
     Dates: start: 20120210
  2. DIGOXIN [Concomitant]
     Dosage: UNK
  3. DILTIAZEM [Concomitant]
     Dosage: UNK
  4. FISH OIL [Concomitant]
     Dosage: UNK
  5. CO-Q-10 [Concomitant]
     Dosage: UNK
  6. IRON [Concomitant]
     Dosage: UNK
  7. LEXAPRO [Concomitant]
     Dosage: UNK
  8. GLIPIZIDE [Concomitant]
     Indication: DIABETES MELLITUS
     Dosage: UNK
  9. TYLENOL [Concomitant]
     Dosage: AS NEEDED
  10. METOPROLOL [Concomitant]
     Indication: HYPERTENSION
     Dosage: 100 MG, 1X/DAY, DAILY
  11. VALSARTAN [Concomitant]
     Indication: HYPERTENSION
     Dosage: 160/12.5 MG,DAILY

REACTIONS (11)
  - Alopecia [Unknown]
  - Hair colour changes [Unknown]
  - Dyspepsia [Not Recovered/Not Resolved]
  - Dyspepsia [Not Recovered/Not Resolved]
  - Dysgeusia [Unknown]
  - Appetite disorder [Unknown]
  - Food allergy [Unknown]
  - Eye swelling [Unknown]
  - Alopecia [Recovering/Resolving]
  - Fatigue [Unknown]
  - Oral pain [Unknown]
